FAERS Safety Report 8423392-5 (Version None)
Quarter: 2012Q2

REPORT INFORMATION
  Report Type: 
  Country: None (occurrence: None)
  Receive Date: 20120608
  Receipt Date: 20120530
  Transmission Date: 20120825
  Serious: Yes (Hospitalization)
  Sender: FDA-Public Use
  Company Number: US-ASTRAZENECA-2012SE36082

PATIENT
  Sex: Female

DRUGS (2)
  1. SEROQUEL [Suspect]
     Indication: DEPRESSION
     Route: 048
  2. SYNTHROID [Concomitant]

REACTIONS (7)
  - DEPRESSION [None]
  - HYPERTHYROIDISM [None]
  - DRUG PRESCRIBING ERROR [None]
  - SOMNOLENCE [None]
  - HYPOTHYROIDISM [None]
  - THYROID DISORDER [None]
  - DRUG INEFFECTIVE FOR UNAPPROVED INDICATION [None]
